FAERS Safety Report 9876200 (Version 2)
Quarter: 2014Q1

REPORT INFORMATION
  Report Type: Spontaneous
  Country: IT (occurrence: IT)
  Receive Date: 20140206
  Receipt Date: 20140206
  Transmission Date: 20141002
  Serious: Yes (Other)
  Sender: FDA-Public Use
  Company Number: IT-RANBAXY-2013R1-65284

PATIENT
  Age: 69 Year
  Sex: Male

DRUGS (1)
  1. AMOXICILLIN [Suspect]
     Indication: DERMAL CYST
     Dosage: 1 G, DAILY
     Route: 048
     Dates: start: 20120711, end: 20120711

REACTIONS (3)
  - Angioedema [Recovering/Resolving]
  - Face oedema [Recovering/Resolving]
  - Lip swelling [Recovering/Resolving]
